FAERS Safety Report 4843684-6 (Version None)
Quarter: 2005Q4

REPORT INFORMATION
  Report Type: 
  Country: None (occurrence: None)
  Receive Date: 20051202
  Receipt Date: 20051123
  Transmission Date: 20060501
  Serious: Yes (Hospitalization)
  Sender: FDA-Public Use
  Company Number: FR-BRISTOL-MYERS SQUIBB COMPANY-13196118

PATIENT
  Age: 62 Year
  Sex: Female

DRUGS (12)
  1. LOPRIL TABS [Suspect]
     Route: 048
  2. LASILIX [Suspect]
  3. LOPRESSOR [Suspect]
  4. PREVISCAN [Suspect]
     Dates: start: 20050801, end: 20050824
  5. SINTROM [Suspect]
     Dosage: 4 MILLIGRAM THERAPY
     Dates: start: 20050818, end: 20050824
  6. DELURSAN [Suspect]
  7. NPH INSULIN [Concomitant]
     Dosage: DOSE UNIT = UNITS
  8. LANTUS [Concomitant]
  9. ACTRAPID [Concomitant]
     Dosage: DOSE UNITS = UNITS
  10. DIFRAREL [Concomitant]
  11. CACIT D3 [Concomitant]
  12. DUPHALAC [Concomitant]
     Dosage: DOSE = 2-4 PACKS

REACTIONS (2)
  - CUTANEOUS VASCULITIS [None]
  - ENCEPHALOPATHY [None]
